FAERS Safety Report 9857011 (Version 1)
Quarter: 2014Q1

REPORT INFORMATION
  Report Type: Spontaneous
  Country: GB (occurrence: None)
  Receive Date: 20140128
  Receipt Date: 20140128
  Transmission Date: 20141002
  Serious: Yes (Hospitalization, Other)
  Sender: FDA-Public Use
  Company Number: KAD201401-000087

PATIENT
  Age: 58 Year
  Sex: Male

DRUGS (6)
  1. RIBAVIRIN (RIBAVIRIN) [Suspect]
     Indication: HEPATITIS C
     Route: 048
     Dates: start: 20130710, end: 20130828
  2. INCIVO (TELAPREVIR) [Suspect]
     Indication: HEPATITIS C
     Route: 048
     Dates: start: 20130710, end: 20130828
  3. PEGINTERFERON ALFA-2A (PEGINTERFERON ALFA-2A) [Suspect]
     Indication: HEPATITIS C
     Route: 058
     Dates: start: 20130710, end: 20130828
  4. ATAZANAVIR (ATAZANAVIR) [Concomitant]
  5. RALTEGREVIR (RALTEGREVIR) [Concomitant]
  6. RITONAVIR (RITONAVIR) [Concomitant]

REACTIONS (5)
  - Anaemia [None]
  - Leukopenia [None]
  - Renal impairment [None]
  - Off label use [None]
  - Platelet count decreased [None]
